FAERS Safety Report 19801250 (Version 4)
Quarter: 2022Q2

REPORT INFORMATION
  Report Type: Report from Study
  Country: US (occurrence: US)
  Receive Date: 20210907
  Receipt Date: 20220525
  Transmission Date: 20220721
  Serious: Yes (Death, Life-Threatening, Hospitalization, Disabling, Other)
  Sender: FDA-Public Use
  Company Number: US-NOVARTISPH-NVSC2021US202125

PATIENT
  Age: 40 Year
  Sex: Male
  Weight: 101.3 kg

DRUGS (37)
  1. NEORAL [Suspect]
     Active Substance: CYCLOSPORINE
     Indication: COVID-19
     Dosage: 230 MG, BID
     Route: 048
     Dates: start: 20210720, end: 20210726
  2. DEXAMETHASONE [Suspect]
     Active Substance: DEXAMETHASONE
     Indication: COVID-19
     Dosage: UNK
     Route: 048
     Dates: start: 20210715
  3. DEXAMETHASONE [Suspect]
     Active Substance: DEXAMETHASONE
     Dosage: 6 MG, QD
     Route: 042
     Dates: start: 20210718, end: 20210728
  4. REMDESIVIR [Suspect]
     Active Substance: REMDESIVIR
     Indication: COVID-19
     Dosage: 100 MG, QD
     Route: 042
     Dates: start: 20210720, end: 20210729
  5. TOCILIZUMAB [Suspect]
     Active Substance: TOCILIZUMAB
     Indication: Product used for unknown indication
     Dosage: 800 MG, ONCE/SINGLE
     Route: 042
     Dates: start: 20210718
  6. ENOXAPARIN [Concomitant]
     Active Substance: ENOXAPARIN
     Indication: Thrombosis prophylaxis
     Dosage: 40 MG, Q12H
     Route: 058
     Dates: start: 20210720
  7. INSULIN NOS [Concomitant]
     Active Substance: INSULIN NOS
     Indication: Hyperglycaemia
     Dosage: 2 UNITS 70/30, TID
     Route: 058
     Dates: start: 20210807
  8. FAMOTIDINE [Concomitant]
     Active Substance: FAMOTIDINE
     Indication: Gastrointestinal disorder prophylaxis
     Dosage: 20 MG, QD
     Route: 048
     Dates: start: 20210718
  9. INSULIN LISPRO [Concomitant]
     Active Substance: INSULIN LISPRO
     Indication: Hyperglycaemia
     Dosage: SLIDING SCALE 0-8 UNITS WITH MEALS
     Route: 058
     Dates: start: 20210719
  10. SENNA [Concomitant]
     Active Substance: SENNA LEAF\SENNOSIDES\SENNOSIDES A AND B
     Indication: Constipation
     Dosage: 17.2 MG, QD
     Route: 048
     Dates: start: 20210721
  11. SENNA [Concomitant]
     Active Substance: SENNA LEAF\SENNOSIDES\SENNOSIDES A AND B
     Dosage: 17.2 MG, BID
     Route: 048
     Dates: start: 20210722
  12. MAGNESIUM HYDROXIDE [Concomitant]
     Active Substance: MAGNESIUM HYDROXIDE
     Indication: Constipation
     Dosage: 30 ML, QD, FEEDING TUBE
     Route: 065
     Dates: start: 20210525
  13. MAGNESIUM HYDROXIDE [Concomitant]
     Active Substance: MAGNESIUM HYDROXIDE
     Dosage: 2400 MG, QD
     Route: 048
     Dates: start: 20210723, end: 20210723
  14. ACETAMINOPHEN [Concomitant]
     Active Substance: ACETAMINOPHEN
     Indication: Product used for unknown indication
     Dosage: 650 MG, Q6H
     Route: 048
     Dates: start: 20210724
  15. CHLORHEXIDINE [Concomitant]
     Active Substance: CHLORHEXIDINE
     Indication: Product used for unknown indication
     Dosage: 15 ML, BID
     Route: 048
     Dates: start: 20210724
  16. DOCUSATE SODIUM [Concomitant]
     Active Substance: DOCUSATE SODIUM
     Indication: Constipation
     Dosage: 100 MG, BID
     Route: 048
     Dates: start: 20210722
  17. FUROSEMIDE [Concomitant]
     Active Substance: FUROSEMIDE
     Indication: Product used for unknown indication
     Dosage: 40 MG, 2 DOSES
     Route: 048
     Dates: start: 20210727, end: 20210727
  18. LACTULOSE [Concomitant]
     Active Substance: LACTULOSE
     Indication: Product used for unknown indication
     Dosage: 20 G, QD, FEEDING TUBE
     Route: 065
     Dates: start: 20210726
  19. LIDOCAINE [Concomitant]
     Active Substance: LIDOCAINE
     Indication: Product used for unknown indication
     Dosage: 5 ML, ONCE
     Route: 058
     Dates: start: 20210727, end: 20210727
  20. MELATONIN [Concomitant]
     Active Substance: MELATONIN
     Indication: Product used for unknown indication
     Dosage: 6 MG, HS
     Route: 048
     Dates: start: 20210726
  21. METOCLOPRAMIDE [Concomitant]
     Active Substance: METOCLOPRAMIDE
     Indication: Product used for unknown indication
     Dosage: 10 UNK, Q6H
     Route: 042
     Dates: start: 20210727
  22. VITAMINS [Concomitant]
     Active Substance: VITAMINS
     Indication: Product used for unknown indication
     Dosage: 15 ML, QD
     Route: 048
     Dates: start: 20210719
  23. POLYETHYLENE GLYCOL [Concomitant]
     Active Substance: POLYETHYLENE GLYCOL
     Indication: Product used for unknown indication
     Dosage: 17 G, BID
     Route: 048
     Dates: start: 20210723
  24. POTASSIUM CHLORIDE [Concomitant]
     Active Substance: POTASSIUM CHLORIDE
     Indication: Product used for unknown indication
     Dosage: 20 MEQ, ONCE
     Route: 042
     Dates: start: 20210727
  25. QUETIAPINE [Concomitant]
     Active Substance: QUETIAPINE
     Indication: Insomnia
     Dosage: 100 MG, HS
     Route: 048
     Dates: start: 20210726
  26. QUETIAPINE [Concomitant]
     Active Substance: QUETIAPINE
     Indication: Agitation
  27. ROCURONIUM [Concomitant]
     Active Substance: ROCURONIUM BROMIDE
     Indication: Product used for unknown indication
     Dosage: 50 MG, 2 DOSES
     Route: 048
     Dates: start: 20210727, end: 20210727
  28. CISATRACURIUM [Concomitant]
     Active Substance: CISATRACURIUM
     Indication: Product used for unknown indication
     Dosage: 0-10 MCG/KG/MIN
     Route: 042
     Dates: start: 20210727
  29. DEXMEDETOMIDINE [Concomitant]
     Active Substance: DEXMEDETOMIDINE
     Indication: Product used for unknown indication
     Dosage: 0.2-1.5 MCG/KG/H
     Route: 042
     Dates: start: 20210727
  30. HEPARIN [Concomitant]
     Active Substance: HEPARIN SODIUM
     Indication: Product used for unknown indication
     Dosage: 25,000 UNITS/250 ML, 5-45 UNITS/KG/H
     Route: 042
     Dates: start: 20210727
  31. HYDROMORPHONE [Concomitant]
     Active Substance: HYDROMORPHONE
     Indication: Product used for unknown indication
     Dosage: 0-2 MG/H
     Route: 042
     Dates: start: 20210721
  32. KETAMINE [Concomitant]
     Active Substance: KETAMINE
     Indication: Product used for unknown indication
     Dosage: 0-2.5 MG/KG/H
     Route: 042
     Dates: start: 20210727
  33. MIDAZOLAM [Concomitant]
     Active Substance: MIDAZOLAM
     Indication: Product used for unknown indication
     Dosage: 0-5 MG/H
     Route: 042
     Dates: start: 20210718
  34. NOREPINEPHRINE [Concomitant]
     Active Substance: NOREPINEPHRINE
     Indication: Product used for unknown indication
     Dosage: 0.01-3 MCG/KG/MIN
     Route: 042
     Dates: start: 20210724
  35. PROPOFOL [Concomitant]
     Active Substance: PROPOFOL
     Indication: Sedation
     Dosage: 5-50 MCG/KG/MIN
     Route: 042
     Dates: start: 20210718
  36. VASOPRESSIN [Concomitant]
     Active Substance: VASOPRESSIN
     Indication: Product used for unknown indication
     Dosage: 0.04-0.1 UNITS/MIN
     Route: 042
     Dates: start: 20210724
  37. ESMOLOL [Concomitant]
     Active Substance: ESMOLOL HYDROCHLORIDE
     Indication: Tachycardia
     Dosage: 0?300 ?G/KG/MIN
     Route: 042
     Dates: start: 20210728

REACTIONS (4)
  - Pneumonia [Fatal]
  - Pneumothorax [Unknown]
  - Acute kidney injury [Unknown]
  - Ventricular fibrillation [Fatal]

NARRATIVE: CASE EVENT DATE: 20210723
